FAERS Safety Report 6106268-8 (Version None)
Quarter: 2009Q1

REPORT INFORMATION
  Report Type: 
  Country: None (occurrence: None)
  Receive Date: 20090306
  Receipt Date: 20090224
  Transmission Date: 20090719
  Serious: Yes (Hospitalization)
  Sender: FDA-Public Use
  Company Number: PHHY2009ES06768

PATIENT
  Age: 44 Year
  Sex: Male

DRUGS (3)
  1. TRILEPTAL [Suspect]
     Indication: CYCLOTHYMIC DISORDER
     Dosage: 450 MG, UNK
     Route: 048
  2. ORFIDAL [Concomitant]
  3. STILNOX                                 /FRA/ [Concomitant]

REACTIONS (3)
  - ABDOMINAL PAIN UPPER [None]
  - HYPERTENSIVE CRISIS [None]
  - NODULE [None]
